FAERS Safety Report 16859683 (Version 3)
Quarter: 2020Q1

REPORT INFORMATION
  Report Type: Report from Study
  Country: US (occurrence: US)
  Receive Date: 20190927
  Receipt Date: 20200327
  Transmission Date: 20200409
  Serious: Yes (Other)
  Sender: FDA-Public Use
  Company Number: US-ROCHE-1945636

PATIENT
  Sex: Male
  Weight: 93.52 kg

DRUGS (7)
  1. ERIVEDGE [Suspect]
     Active Substance: VISMODEGIB
     Dosage: TAKE 1 CAPSULE BY MOUTH DAILY TAKE WITH A BIG GLAS
     Route: 048
  2. ERIVEDGE [Suspect]
     Active Substance: VISMODEGIB
     Indication: BASAL CELL CARCINOMA
     Dosage: ONGOING : NO
     Route: 048
     Dates: start: 20170401, end: 20170530
  3. SIMVASTATIN. [Concomitant]
     Active Substance: SIMVASTATIN
     Indication: BLOOD CHOLESTEROL
     Dosage: TAKES HALF A (80MG) TABLET ONCE A DAY ONGOING: YES
     Route: 048
  4. ASPIRIN [ACETYLSALICYLIC ACID] [Concomitant]
     Active Substance: ASPIRIN
     Indication: ANTICOAGULANT THERAPY
     Dosage: 1 TIME A DAY WITH 1 DAY INTERVAL ONGOING:YES
     Route: 048
  5. ERIVEDGE [Suspect]
     Active Substance: VISMODEGIB
     Dosage: 1 TIME ON 1 DAY INTERVAL ONGOING: NO
     Route: 048
     Dates: start: 2017, end: 2017
  6. ERIVEDGE [Suspect]
     Active Substance: VISMODEGIB
     Dosage: 1 TIME WITH ONE DAY INTERVAL ONGOING: NO
     Route: 048
     Dates: start: 201909, end: 201911
  7. ERIVEDGE [Suspect]
     Active Substance: VISMODEGIB
     Dosage: 1 TIME WITH ONE DAY INTERVAL ONGOING: NO
     Route: 048
     Dates: start: 20200101, end: 20200210

REACTIONS (12)
  - Tongue discomfort [Unknown]
  - Constipation [Recovered/Resolved]
  - Basal cell carcinoma [Not Recovered/Not Resolved]
  - Nausea [Recovered/Resolved]
  - Decreased appetite [Unknown]
  - Taste disorder [Unknown]
  - Rectal discharge [Unknown]
  - Muscle spasms [Recovered/Resolved]
  - Weight decreased [Recovered/Resolved]
  - Diarrhoea [Recovered/Resolved with Sequelae]
  - Frequent bowel movements [Recovered/Resolved]
  - Ageusia [Recovered/Resolved]

NARRATIVE: CASE EVENT DATE: 2017
